FAERS Safety Report 4575433-3 (Version None)
Quarter: 2005Q1

REPORT INFORMATION
  Report Type: 
  Country: None (occurrence: None)
  Receive Date: 20050131
  Receipt Date: 20050131
  Transmission Date: 20050727
  Serious: Yes (Life-Threatening, Hospitalization)
  Sender: FDA-Public Use
  Company Number: None

PATIENT
  Age: 61 Year
  Sex: Female
  Weight: 39.9982 kg

DRUGS (4)
  1. CISPLATIN [Suspect]
     Indication: LARYNGEAL CANCER RECURRENT
     Dosage: 30 MG/M2   Q WEEK 1,2,4,5   INTRAVENOU
     Route: 042
     Dates: start: 20041220, end: 20050117
  2. CISPLATIN [Suspect]
     Indication: METASTASIS
     Dosage: 30 MG/M2   Q WEEK 1,2,4,5   INTRAVENOU
     Route: 042
     Dates: start: 20041220, end: 20050117
  3. CPT-11 [Suspect]
     Indication: LARYNGEAL CANCER RECURRENT
     Dosage: 50 MG/M2   Q WEEK 1,2,4,5   INTRAVENOU
     Route: 042
     Dates: start: 20041220, end: 20050117
  4. CPT-11 [Suspect]
     Indication: METASTASIS
     Dosage: 50 MG/M2   Q WEEK 1,2,4,5   INTRAVENOU
     Route: 042
     Dates: start: 20041220, end: 20050117

REACTIONS (1)
  - PULMONARY EMBOLISM [None]
